FAERS Safety Report 23596468 (Version 1)
Quarter: 2024Q1

REPORT INFORMATION
  Report Type: Spontaneous
  Country: US (occurrence: US)
  Receive Date: 20240305
  Receipt Date: 20240305
  Transmission Date: 20240410
  Serious: No
  Sender: FDA-Public Use
  Company Number: US-LEO Pharma-368090

PATIENT
  Age: 37 Year
  Sex: Female

DRUGS (2)
  1. ADBRY [Suspect]
     Active Substance: TRALOKINUMAB-LDRM
     Indication: Neurodermatitis
     Dosage: INJECT 600MG (4 SYRINGES) SUBCUTANEOUSLY ON DAY 1
     Route: 058
     Dates: start: 202310
  2. ADBRY [Suspect]
     Active Substance: TRALOKINUMAB-LDRM
     Indication: Neurodermatitis
     Dosage: TREATMENT IS ONGOING
     Route: 058

REACTIONS (2)
  - Streptococcal infection [Unknown]
  - Product use in unapproved indication [Unknown]
